FAERS Safety Report 7462731-9 (Version None)
Quarter: 2011Q2

REPORT INFORMATION
  Report Type: 
  Country: None (occurrence: None)
  Receive Date: 20110506
  Receipt Date: 20110428
  Transmission Date: 20111010
  Serious: Yes (Hospitalization, Other)
  Sender: FDA-Public Use
  Company Number: US-AMGEN-USASP2011022252

PATIENT
  Age: 63 Year
  Sex: Male

DRUGS (1)
  1. ENBREL [Suspect]
     Indication: RHEUMATOID ARTHRITIS
     Dosage: 50 MG, QWK
     Dates: start: 20000101

REACTIONS (7)
  - POST PROCEDURAL INFECTION [None]
  - DEVICE LEAD DAMAGE [None]
  - CORONARY ARTERY DISEASE [None]
  - CATARACT [None]
  - DIZZINESS [None]
  - STAPHYLOCOCCAL INFECTION [None]
  - HYPOTENSION [None]
